FAERS Safety Report 5136914-7 (Version None)
Quarter: 2006Q4

REPORT INFORMATION
  Report Type: 
  Country: None (occurrence: None)
  Receive Date: 20061023
  Receipt Date: 20061012
  Transmission Date: 20070319
  Serious: Yes (Other)
  Sender: FDA-Public Use
  Company Number: 2006113897

PATIENT
  Age: 69 Year
  Sex: Male

DRUGS (8)
  1. LIPITOR [Suspect]
     Indication: HYPERCHOLESTEROLAEMIA
     Dosage: 10 MG (1 IN 1 D), ORAL
     Route: 048
     Dates: start: 20060701, end: 20060913
  2. TICLOPIDINE HCL [Suspect]
     Dosage: 200 MG (1 IN 1 D), ORAL
     Route: 048
     Dates: start: 20060807, end: 20060907
  3. SIGMART (NICORANDIL) [Suspect]
     Dosage: 15 MG (1 IN 1 D), ORAL
     Route: 048
     Dates: start: 20060821, end: 20060825
  4. ALLEGRA [Concomitant]
  5. ASPIRIN [Concomitant]
  6. ISOSORBIDE DINITRATE [Concomitant]
  7. LANSOPRAZOLE [Concomitant]
  8. ISOSORBIDE DINITRATE [Concomitant]

REACTIONS (7)
  - ALANINE AMINOTRANSFERASE INCREASED [None]
  - ASPARTATE AMINOTRANSFERASE INCREASED [None]
  - BLOOD ALKALINE PHOSPHATASE INCREASED [None]
  - BLOOD LACTATE DEHYDROGENASE INCREASED [None]
  - CHEST PAIN [None]
  - LIVER DISORDER [None]
  - PRURITUS [None]
